FAERS Safety Report 6771405-9 (Version None)
Quarter: 2010Q2

REPORT INFORMATION
  Report Type: 
  Country: None (occurrence: None)
  Receive Date: 20100616
  Receipt Date: 20100607
  Transmission Date: 20101027
  Serious: Yes (Other)
  Sender: FDA-Public Use
  Company Number: CA-ASTRAZENECA-2010SE27233

PATIENT
  Age: 89 Year
  Sex: Male

DRUGS (3)
  1. CRESTOR [Suspect]
     Route: 048
  2. LIPITOR [Interacting]
     Route: 065
  3. ZOMETA CONCENTRATE [Interacting]
     Route: 042

REACTIONS (6)
  - ABASIA [None]
  - ARTHRALGIA [None]
  - BLOOD PRESSURE ABNORMAL [None]
  - DRUG INTERACTION [None]
  - MYALGIA [None]
  - PAIN OF SKIN [None]
